FAERS Safety Report 9554156 (Version 1)
Quarter: 2013Q3

REPORT INFORMATION
  Report Type: Spontaneous
  Country: US (occurrence: None)
  Receive Date: 20130918
  Receipt Date: 20130918
  Transmission Date: 20140515
  Serious: Yes (Other)
  Sender: FDA-Public Use
  Company Number: 2013SUN00345

PATIENT
  Age: 39 Year
  Sex: Male
  Weight: 79.4 kg

DRUGS (2)
  1. DIVALPROEX SODIUM [Suspect]
     Indication: PRODUCT USED FOR UNKNOWN INDICATION
     Route: 048
  2. INDOMETHACIN (NDOMETHACIN) [Concomitant]

REACTIONS (2)
  - Dizziness [None]
  - Product substitution issue [None]
